FAERS Safety Report 6431276-7 (Version None)
Quarter: 2009Q4

REPORT INFORMATION
  Report Type: 
  Country: None (occurrence: None)
  Receive Date: 20091105
  Receipt Date: 20091105
  Transmission Date: 20100525
  Serious: Yes (Other)
  Sender: FDA-Public Use
  Company Number: None

PATIENT
  Sex: Female
  Weight: 3.6288 kg

DRUGS (1)
  1. GENTAMICIN [Suspect]
     Indication: INFECTION PROPHYLAXIS
     Dosage: ONE TIME AT BIRTH INTRAOCULAR
     Route: 031
     Dates: start: 20090923, end: 20090923

REACTIONS (2)
  - APPLICATION SITE ERYTHEMA [None]
  - APPLICATION SITE VESICLES [None]
